FAERS Safety Report 10380723 (Version 1)
Quarter: 2014Q1

REPORT INFORMATION
  Report Type: Spontaneous
  Country: US (occurrence: None)
  Receive Date: 20140306
  Receipt Date: 20140306
  Transmission Date: 20141002
  Serious: Yes (Hospitalization)
  Sender: FDA-Public Use
  Company Number: 163-21880-13084070

PATIENT
  Age: 53 Year
  Sex: Male

DRUGS (8)
  1. REVLIMID (LENALIDOMIDE) (25 MILLIGRAM, CAPSULES) [Suspect]
     Indication: PLASMA CELL MYELOMA
     Dosage: 25 MG, 21 IN 28 D, PO
     Route: 048
     Dates: start: 20130626, end: 20130716
  2. LASIX (FUROSEMIDE) [Concomitant]
  3. POTASSIUM (POTASSIUM) [Concomitant]
  4. METOPROLOL SUCCINATE 9METOPROLOL SUCCINATE) [Concomitant]
  5. LISINOPRIL (LISINOPRIL) [Concomitant]
  6. METFORMIN (METFORMIN) [Concomitant]
  7. COUMADIN (WARFARIN SODIUM) [Concomitant]
  8. ATORVASTATIN CALCIUM (ATORVASTATIN CALCIUM) [Concomitant]

REACTIONS (6)
  - Hypersensitivity [None]
  - Nausea [None]
  - Vomiting [None]
  - Diarrhoea [None]
  - Rash [None]
  - Pruritus [None]
